FAERS Safety Report 7124751-3 (Version None)
Quarter: 2010Q4

REPORT INFORMATION
  Report Type: 
  Country: None (occurrence: None)
  Receive Date: 20101115
  Receipt Date: 20101101
  Transmission Date: 20110411
  Serious: Yes (Death)
  Sender: FDA-Public Use
  Company Number: 2010P1002381

PATIENT
  Age: 40 Year
  Sex: Female

DRUGS (2)
  1. BETAXOLOL [Suspect]
     Indication: POISONING DELIBERATE
     Dosage: 400 MG; X1
  2. FLECAINIDE (NO PREF. NAME) [Suspect]
     Indication: POISONING DELIBERATE
     Dosage: 12,00 MG; X1

REACTIONS (18)
  - ANURIA [None]
  - BLOOD BICARBONATE DECREASED [None]
  - BLOOD CREATININE INCREASED [None]
  - BLOOD LACTIC ACID INCREASED [None]
  - BLOOD PH DECREASED [None]
  - BLOOD POTASSIUM DECREASED [None]
  - BRADYCARDIA [None]
  - BRAIN DEATH [None]
  - CARDIAC ARREST [None]
  - CARDIOGENIC SHOCK [None]
  - CARDIOTOXICITY [None]
  - DISSEMINATED INTRAVASCULAR COAGULATION [None]
  - LOSS OF CONSCIOUSNESS [None]
  - MULTI-ORGAN FAILURE [None]
  - MYDRIASIS [None]
  - POISONING DELIBERATE [None]
  - PULMONARY OEDEMA [None]
  - VENTRICULAR HYPOKINESIA [None]
